FAERS Safety Report 4913776-1 (Version None)
Quarter: 2006Q1

REPORT INFORMATION
  Report Type: 
  Country: None (occurrence: None)
  Receive Date: 20060216
  Receipt Date: 20051115
  Transmission Date: 20060701
  Serious: Yes (Other)
  Sender: FDA-Public Use
  Company Number: GB-GLAXOSMITHKLINE-B0400697A

PATIENT
  Sex: Female

DRUGS (3)
  1. SEROXAT [Suspect]
     Indication: STRESS
     Route: 065
  2. BUSPIRONE [Concomitant]
     Dosage: 5MG TWICE PER DAY
     Route: 065
  3. DIAZEPAM [Concomitant]
     Dosage: 5MG AT NIGHT
     Route: 065

REACTIONS (4)
  - AGGRESSION [None]
  - COMPLETED SUICIDE [None]
  - CRYING [None]
  - DRUG WITHDRAWAL SYNDROME [None]
